FAERS Safety Report 10247465 (Version 1)
Quarter: 2014Q2

REPORT INFORMATION
  Report Type: Spontaneous
  Country: NO (occurrence: None)
  Receive Date: 20140617
  Receipt Date: 20140617
  Transmission Date: 20141212
  Serious: Yes (Other)
  Sender: FDA-Public Use
  Company Number: FK201402296

PATIENT
  Age: 26 Year
  Sex: Male

DRUGS (11)
  1. CYTARABINE (MANUFACTURER UNKNOWN) (CYTARABINE) (CYTARABINE) [Suspect]
     Indication: PRECURSOR B-LYMPHOBLASTIC LYMPHOMA
     Dosage: 200 MG/M2, INTRAVENOUS (NOT OTHERWISE SPECIFIED)
     Route: 042
  2. MERCAPTOPURINE (MERCAPTOPURINE) (MERCAPTOPURINE) [Suspect]
     Indication: PRECURSOR B-LYMPHOBLASTIC LYMPHOMA
     Route: 048
  3. CYCLOPHOSPHAMIDE (CYCLOPHOSPHAMIDE) (CYCLOPHOSPHAMIDE) [Suspect]
     Indication: PRECURSOR B-LYMPHOBLASTIC LYMPHOMA
     Dosage: 750 MG/M2, INTRAVENOUS (NOT OTHERWISE SPECIFIED)
     Route: 042
  4. PREDNISONE (PREDNISONE) (PREDNISONE) [Suspect]
     Indication: PRECURSOR B-LYMPHOBLASTIC LYMPHOMA
     Route: 048
  5. VINCRISTINE SULFATE (VINCRISTINE SULFATE) (VINCRISTINE SULFATE) [Suspect]
     Indication: PRECURSOR B-LYMPHOBLASTIC LYMPHOMA
     Dosage: 1 MG/M2, INTRAVENOUS (NOT OTHERWISE SPECIFIED)
     Route: 042
  6. THIOGUANINE (THIOGUANINE) (THIOGUANINE) [Suspect]
     Indication: PRECURSOR B-LYMPHOBLASTIC LYMPHOMA
     Dosage: 150 MG/M2, INTRAVENOUS (NOT OTHERWISE SPECIFIED)
     Route: 042
  7. G-CSF (GRANULOCYTE COLONY STIMULATING FACTOR) (GRANULOCYTE COLONY STIMULATING FACTOR) [Suspect]
     Indication: PERIPHERAL BLOOD STEM CELL APHERESIS
  8. DAUNORUBICIN (DAUNORUBICIN) (DAUNORUBICIN) [Suspect]
     Indication: PRECURSOR B-LYMPHOBLASTIC LYMPHOMA
     Dosage: 50 MG/M2, INTRAVENOUS (NOT OTHERWISE SPECIFIED)
     Route: 042
  9. METHOTREXATE (METHOTREXATE) (METHOTREXATE) [Suspect]
     Indication: PRECURSOR B-LYMPHOBLASTIC LYMPHOMA
     Dosage: 1500 MG/M2,  INTRAVENOUS (NOT OTHERWISE SPECIFED)
     Route: 042
  10. L-ASPARAGINASE (L-ASPARAGINASE) (L-ASPARAGINASE) [Suspect]
     Indication: PRECURSOR B-LYMPHOBLASTIC LYMPHOMA
     Dosage: 10000 IU, INTRAVENOUS (NOT OTHERWISE SPECIFIED)
     Route: 042
  11. DOXORUBICIN (DOXORUBICIN) (DOXORUBICIN) [Suspect]
     Indication: PRECURSOR B-LYMPHOBLASTIC LYMPHOMA
     Dosage: 30 MG/M2, INTRAVENOUS (NOT OTHERWISE SPECIFIED)
     Route: 042

REACTIONS (3)
  - Febrile neutropenia [None]
  - Osteonecrosis [None]
  - Haematotoxicity [None]
